FAERS Safety Report 15785749 (Version 1)
Quarter: 2019Q1

REPORT INFORMATION
  Report Type: Spontaneous
  Country: US (occurrence: US)
  Receive Date: 20190101
  Receipt Date: 20190101
  Transmission Date: 20190417
  Serious: No
  Sender: FDA-Public Use
  Company Number: None

PATIENT
  Age: 23 Year
  Sex: Female
  Weight: 81 kg

DRUGS (2)
  1. PRENATAL [Concomitant]
     Active Substance: VITAMINS
  2. CLINDAMYCIN. [Suspect]
     Active Substance: CLINDAMYCIN
     Indication: BACTERIAL VAGINOSIS
     Dosage: ?          QUANTITY:14 CAPSULE(S);?
     Route: 048
     Dates: start: 20181229, end: 20190101

REACTIONS (2)
  - Rash macular [None]
  - Pruritus [None]

NARRATIVE: CASE EVENT DATE: 20190101
